FAERS Safety Report 8573465-1 (Version None)
Quarter: 2012Q2

REPORT INFORMATION
  Report Type: 
  Country: None (occurrence: None)
  Receive Date: 20120423
  Receipt Date: 20101020
  Transmission Date: 20120825
  Serious: Yes (Hospitalization)
  Sender: FDA-Public Use
  Company Number: PHHY2010US70895

PATIENT
  Age: 75 Year
  Sex: Male

DRUGS (1)
  1. EXJADE [Suspect]
     Indication: LYMPHOPROLIFERATIVE DISORDER
     Dosage: 1500 MG, QD, ORAL
     Route: 048
     Dates: start: 20100824, end: 20101012

REACTIONS (2)
  - FULL BLOOD COUNT DECREASED [None]
  - PLATELET COUNT DECREASED [None]
